FAERS Safety Report 5252057-6 (Version None)
Quarter: 2007Q1

REPORT INFORMATION
  Report Type: 
  Country: None (occurrence: None)
  Receive Date: 20070226
  Receipt Date: 20070208
  Transmission Date: 20070707
  Serious: Yes (Hospitalization)
  Sender: FDA-Public Use
  Company Number: VNL_0415_2007

PATIENT
  Age: 71 Year
  Sex: Female

DRUGS (6)
  1. APO-GO [Suspect]
     Indication: PARKINSON'S DISEASE
     Dosage: 5 MG/HR CON SC
     Route: 058
     Dates: start: 20060102
  2. APO-GO [Suspect]
     Indication: PARKINSON'S DISEASE
     Dosage: 6 MG/HR CON SC
     Route: 058
  3. MADOPAR 125 [Concomitant]
  4. SEROQUEL [Concomitant]
  5. RIVOTRIL [Concomitant]
  6. AMANTADINE HCL [Concomitant]

REACTIONS (2)
  - FALL [None]
  - LACERATION [None]
